FAERS Safety Report 5217405-1 (Version None)
Quarter: 2007Q1

REPORT INFORMATION
  Report Type: 
  Country: None (occurrence: None)
  Receive Date: 20070124
  Receipt Date: 20060209
  Transmission Date: 20070707
  Serious: No
  Sender: FDA-Public Use
  Company Number: US-GLAXOSMITHKLINE-A0593040A

PATIENT
  Age: 52 Year
  Sex: Female

DRUGS (4)
  1. PAXIL CR [Suspect]
     Dosage: 25MG PER DAY
     Route: 048
     Dates: start: 20060101
  2. LOTENSIN [Concomitant]
  3. LIPITOR [Concomitant]
  4. PAXIL [Concomitant]
     Indication: DEPRESSION
     Route: 048
     Dates: end: 20060101

REACTIONS (4)
  - ANXIETY [None]
  - DEPRESSION [None]
  - DRUG INEFFECTIVE [None]
  - SNORING [None]
